FAERS Safety Report 9812362 (Version 1)
Quarter: 2014Q1

REPORT INFORMATION
  Report Type: Spontaneous
  Country: ES (occurrence: ES)
  Receive Date: 20140113
  Receipt Date: 20140113
  Transmission Date: 20141002
  Serious: Yes (Other)
  Sender: FDA-Public Use
  Company Number: ES-JNJFOC-20131218261

PATIENT
  Age: 17 Year
  Sex: Female

DRUGS (2)
  1. PARACETAMOL [Suspect]
     Route: 048
  2. PARACETAMOL [Suspect]
     Indication: ALLERGY TEST
     Route: 048

REACTIONS (5)
  - Dyspnoea [Unknown]
  - Pharyngitis [Unknown]
  - Urticaria [Unknown]
  - Off label use [Unknown]
  - Ear pruritus [Unknown]
